FAERS Safety Report 21112229 (Version 2)
Quarter: 2022Q3

REPORT INFORMATION
  Report Type: Spontaneous
  Country: US (occurrence: US)
  Receive Date: 20220721
  Receipt Date: 20220805
  Transmission Date: 20221027
  Serious: Yes (Hospitalization)
  Sender: FDA-Public Use
  Company Number: US-PFIZER INC-PV202200026527

PATIENT
  Age: 80 Year
  Sex: Female
  Weight: 56.33 kg

DRUGS (1)
  1. LORBRENA [Suspect]
     Active Substance: LORLATINIB
     Dosage: 100 MG

REACTIONS (1)
  - Mental disorder [Unknown]
